FAERS Safety Report 5873758-2 (Version None)
Quarter: 2008Q3

REPORT INFORMATION
  Report Type: 
  Country: None (occurrence: None)
  Receive Date: 20080904
  Receipt Date: 20080904
  Transmission Date: 20090109
  Serious: Yes (Hospitalization)
  Sender: FDA-Public Use
  Company Number: None

PATIENT
  Age: 64 Year
  Sex: Male
  Weight: 81 kg

DRUGS (16)
  1. GEMCITABINE [Suspect]
     Indication: BLADDER CANCER
     Dosage: 1000 MG/M**2 CYC
     Dates: start: 20080711, end: 20080711
  2. CISPLATIN [Suspect]
     Indication: BLADDER CANCER
     Dosage: 70 MG/M**2 CYC IV
     Route: 042
     Dates: start: 20080704, end: 20080704
  3. ASAFLOW [Concomitant]
  4. PERSANTINE RETARD [Concomitant]
  5. UNIDIAMICRON [Concomitant]
  6. LYRICA [Concomitant]
  7. MEDROL [Concomitant]
  8. SPIRALEXA [Concomitant]
  9. TEMESTA [Concomitant]
  10. DAFALGAN [Concomitant]
  11. UROGESIC [Concomitant]
  12. MOVICOL [Concomitant]
  13. DEXAMETHASONE [Concomitant]
  14. NOVOBAN [Concomitant]
  15. MOTILIUM [Concomitant]
  16. LITICAN [Concomitant]

REACTIONS (7)
  - ANAEMIA [None]
  - CANDIDIASIS [None]
  - CARDIAC VALVE VEGETATION [None]
  - ENDOCARDITIS [None]
  - PLATELET COUNT DECREASED [None]
  - STAPHYLOCOCCAL INFECTION [None]
  - WHITE BLOOD CELL COUNT DECREASED [None]
